FAERS Safety Report 15746079 (Version 2)
Quarter: 2018Q4

REPORT INFORMATION
  Report Type: Spontaneous
  Country: MM (occurrence: MM)
  Receive Date: 20181220
  Receipt Date: 20181224
  Transmission Date: 20190205
  Serious: Yes (Death, Other)
  Sender: FDA-Public Use
  Company Number: MM-PFIZER INC-2018521292

PATIENT
  Age: 34 Year
  Sex: Female
  Weight: 31 kg

DRUGS (9)
  1. AMOXICILLIN AND CLAVULANATE POTASSIUM [Suspect]
     Active Substance: AMOXICILLIN\CLAVULANATE POTASSIUM
     Indication: TUBERCULOSIS
     Dosage: 625 MG, 2X/DAY (BID (TWICE DAILY) (BD 6DAYS/WEEK), UNKNOWN)
     Dates: start: 20180725, end: 2018
  2. BEDAQUILINE [Suspect]
     Active Substance: BEDAQUILINE
     Indication: TUBERCULOSIS
     Dosage: 200 MG, UNK (TIW (THREE TIMES A WEEK))
     Route: 048
     Dates: start: 20180725
  3. AMOXICILLIN AND CLAVULANATE POTASSIUM [Suspect]
     Active Substance: AMOXICILLIN\CLAVULANATE POTASSIUM
     Dosage: UNK
     Dates: start: 20070424, end: 200802
  4. LINEZOLID. [Suspect]
     Active Substance: LINEZOLID
     Indication: TUBERCULOSIS
     Dosage: UNK
     Dates: start: 20180725, end: 2018
  5. DELAMANID [Suspect]
     Active Substance: DELAMANID
     Indication: TUBERCULOSIS
     Dosage: 100 MG, 2X/DAY (BID (TWICE A DAY))
     Route: 048
     Dates: start: 20180725
  6. IMIPENEM AND CILASTATIN [Suspect]
     Active Substance: CILASTATIN SODIUM\IMIPENEM
     Indication: TUBERCULOSIS
     Dosage: 1 G, 2X/DAY (BID (TWICE DAY) (BD 6 DAYS/WEEK)
     Route: 042
     Dates: start: 20180725
  7. LINEZOLID. [Suspect]
     Active Substance: LINEZOLID
     Dosage: 300 MG, 1X/DAY (QD (ONCE DAILY))
     Route: 048
     Dates: start: 20180926, end: 2018
  8. CLOFAZIMINE [Suspect]
     Active Substance: CLOFAZIMINE
     Indication: TUBERCULOSIS
     Dosage: 100 MG, 1X/DAY (QD (ONCE DAILY), ORAL)
     Route: 048
     Dates: start: 20180725
  9. SUPRAVIT [VITAMIN B COMPLEX] [Concomitant]
     Indication: MALNUTRITION
     Dosage: UNK
     Dates: start: 20180917

REACTIONS (12)
  - Product use in unapproved indication [Unknown]
  - Electrocardiogram QT prolonged [Unknown]
  - Anaemia [Unknown]
  - Respiratory failure [Fatal]
  - Pneumothorax [Fatal]
  - Depression [Unknown]
  - Dyspnoea [Fatal]
  - Aspartate aminotransferase increased [Unknown]
  - Empyema [Fatal]
  - Platelet count increased [Unknown]
  - White blood cell count increased [Unknown]
  - Tuberculosis [Fatal]
